FAERS Safety Report 7096043-2 (Version None)
Quarter: 2010Q4

REPORT INFORMATION
  Report Type: 
  Country: None (occurrence: None)
  Receive Date: 20101111
  Receipt Date: 20090608
  Transmission Date: 20110411
  Serious: No
  Sender: FDA-Public Use
  Company Number: US-KINGPHARMUSA00001-K200900703

PATIENT
  Age: 77 Year
  Sex: Female

DRUGS (6)
  1. LEVOXYL [Suspect]
     Dosage: 88 MCG, UNK
     Route: 048
  2. LEVOXYL [Suspect]
     Dosage: UNK
     Dates: start: 20040101
  3. EVISTA [Concomitant]
     Dosage: UNK
  4. CITRICAL [Concomitant]
     Dosage: UNK
  5. ASPIRINA BAYER [Concomitant]
     Dosage: UNK
  6. LIDOCAINE HYDROCHLORIDE IN PLASTIC CONTAINER [Concomitant]
     Indication: HEAD INJURY
     Dosage: UNK

REACTIONS (5)
  - BLOOD THYROID STIMULATING HORMONE DECREASED [None]
  - FALL [None]
  - FATIGUE [None]
  - HEAD INJURY [None]
  - PALPITATIONS [None]
